FAERS Safety Report 6422440-1 (Version None)
Quarter: 2009Q4

REPORT INFORMATION
  Report Type: 
  Country: None (occurrence: None)
  Receive Date: 20091030
  Receipt Date: 20091019
  Transmission Date: 20100525
  Serious: Yes (Other)
  Sender: FDA-Public Use
  Company Number: PHHY2009BR45242

PATIENT
  Age: 72 Year
  Sex: Female

DRUGS (3)
  1. FORASEQ [Suspect]
     Dosage: UNK
  2. ANTIDEPRESSANTS [Concomitant]
  3. DRUG THERAPY NOS [Concomitant]

REACTIONS (6)
  - AGEUSIA [None]
  - ANOSMIA [None]
  - ASTHMA [None]
  - COUGH [None]
  - SWELLING [None]
  - TREATMENT NONCOMPLIANCE [None]
